FAERS Safety Report 22058643 (Version 2)
Quarter: 2023Q1

REPORT INFORMATION
  Report Type: Report from Study
  Country: MX (occurrence: MX)
  Receive Date: 20230303
  Receipt Date: 20230313
  Transmission Date: 20230418
  Serious: Yes (Hospitalization)
  Sender: FDA-Public Use
  Company Number: MX-002147023-NVSC2023MX045291

PATIENT
  Age: 77 Year
  Sex: Male
  Weight: 85 kg

DRUGS (1)
  1. EXFORGE [Suspect]
     Active Substance: AMLODIPINE BESYLATE\VALSARTAN
     Indication: Hypertension
     Dosage: 1 DOSAGE FORM, QD (STRENGTH: 160/ 25) (APPROXIMATELY 10 YEARS)
     Route: 048
     Dates: start: 2013, end: 202209

REACTIONS (5)
  - Prostatic disorder [Recovering/Resolving]
  - Renal disorder [Recovering/Resolving]
  - Dyspnoea [Recovering/Resolving]
  - Constipation [Unknown]
  - Insomnia [Unknown]

NARRATIVE: CASE EVENT DATE: 20220801
